FAERS Safety Report 9614700 (Version 2)
Quarter: 2014Q2

REPORT INFORMATION
  Report Type: Spontaneous
  Country: DK (occurrence: FR)
  Receive Date: 20131011
  Receipt Date: 20140401
  Transmission Date: 20141212
  Serious: Yes (Hospitalization)
  Sender: FDA-Public Use
  Company Number: FR-FRI-1000049925

PATIENT
  Age: 85 Year
  Sex: Female

DRUGS (10)
  1. ESCITALOPRAM [Suspect]
     Dosage: 1 DF
     Route: 048
  2. PREVISCAN [Suspect]
     Dosage: 15 MG DAILY D1 AND D2
     Route: 048
  3. PREVISCAN [Suspect]
     Dosage: 20 MG DAILY ON D3
     Dates: end: 20130915
  4. FUROSEMIDE [Concomitant]
     Dosage: 1 DF
  5. CYNOMEL [Concomitant]
     Dosage: 1 DF
  6. SOTALOL [Concomitant]
     Dosage: 2 DF
  7. AMLODIPINE [Concomitant]
     Dosage: 2 DF
  8. SPIRONOLACTONE [Concomitant]
     Dosage: 1 DF
  9. NEO-MERCAZOLE [Concomitant]
     Dosage: 1 DF
  10. LEVOTHYROX [Concomitant]
     Dosage: 150 MCG

REACTIONS (2)
  - Haematoma [Recovered/Resolved]
  - Haemoglobin decreased [Not Recovered/Not Resolved]
